FAERS Safety Report 4339903-5 (Version None)
Quarter: 2004Q2

REPORT INFORMATION
  Report Type: 
  Country: None (occurrence: None)
  Receive Date: 20040412
  Receipt Date: 20040401
  Transmission Date: 20050107
  Serious: Yes (Hospitalization)
  Sender: FDA-Public Use
  Company Number: 04P-056-0255701-00

PATIENT
  Age: 43 Year
  Sex: Male

DRUGS (10)
  1. DEPACON [Suspect]
     Indication: EPILEPSY
     Dosage: 2400 MG, 1 IN 1 D, INTRAVENOUS
     Route: 042
     Dates: start: 20040228, end: 20040303
  2. LAMOTRIGINE [Concomitant]
  3. ZIDOVUDINE W/LAMIVUDINE [Concomitant]
  4. VIREAD [Concomitant]
  5. METRONIDAZOLE [Concomitant]
  6. FUROSEMIDE [Concomitant]
  7. CEFTRIAXONE [Concomitant]
  8. OMEPRAZOLE [Concomitant]
  9. ZOLPIDEM [Concomitant]
  10. CYAMEMAZINE [Concomitant]

REACTIONS (3)
  - ELECTROENCEPHALOGRAM ABNORMAL [None]
  - HYPERAMMONAEMIA [None]
  - METABOLIC ENCEPHALOPATHY [None]
